FAERS Safety Report 8979410 (Version 1)
Quarter: 2012Q4

REPORT INFORMATION
  Report Type: 
  Country: DE (occurrence: NL)
  Receive Date: 20121221
  Receipt Date: 20121221
  Transmission Date: 20130627
  Serious: Yes (Life-Threatening)
  Sender: FDA-Public Use
  Company Number: 2012SP003518

PATIENT
  Age: 44 Year
  Sex: Male
  Weight: 92 kg

DRUGS (1)
  1. ALVESCO [Suspect]
     Indication: ASTHMA
     Route: 055

REACTIONS (2)
  - Flushing [Recovered/Resolved]
  - Delirium [Recovered/Resolved]
